FAERS Safety Report 25995738 (Version 1)
Quarter: 2025Q4

REPORT INFORMATION
  Report Type: Spontaneous
  Country: US (occurrence: None)
  Receive Date: 20251104
  Receipt Date: 20251104
  Transmission Date: 20260118
  Serious: Yes (Hospitalization)
  Sender: FDA-CTU
  Company Number: None

PATIENT
  Age: 41 Year
  Sex: Male
  Weight: 111.1 kg

DRUGS (4)
  1. BLEOMYCIN [Suspect]
     Active Substance: BLEOMYCIN SULFATE
     Dosage: OTHER QUANTITY : 23.3 UNIT;?
     Dates: end: 20251024
  2. DACARBAZINE [Suspect]
     Active Substance: DACARBAZINE
     Dates: end: 20251024
  3. DOXORUBICIN HYDROCHLORIDE [Suspect]
     Active Substance: DOXORUBICIN HYDROCHLORIDE
     Dates: end: 20251024
  4. VINBLASTINE SULFATE [Suspect]
     Active Substance: VINBLASTINE SULFATE
     Dates: end: 20251024

REACTIONS (8)
  - Dyschezia [None]
  - White blood cell count decreased [None]
  - Defaecation urgency [None]
  - Haemoglobin decreased [None]
  - Body temperature increased [None]
  - Heart rate increased [None]
  - Blood lactic acid [None]
  - Faecal occult blood positive [None]

NARRATIVE: CASE EVENT DATE: 20251101
